FAERS Safety Report 21592249 (Version 1)
Quarter: 2022Q4

REPORT INFORMATION
  Report Type: Spontaneous
  Country: US (occurrence: None)
  Receive Date: 20221113
  Receipt Date: 20221113
  Transmission Date: 20230113
  Serious: Yes (Life-Threatening, Other)
  Sender: FDA-Public Use
  Company Number: None

PATIENT
  Age: 50 Year
  Sex: Female
  Weight: 110.25 kg

DRUGS (5)
  1. ASTEPRO [Suspect]
     Active Substance: AZELASTINE HYDROCHLORIDE
     Indication: Allergic sinusitis
     Dosage: OTHER QUANTITY : 1 SPRAY(S);?FREQUENCY : EVERY 12 HOURS;?OTHER ROUTE : NASAL SPRAY;?
     Route: 050
     Dates: start: 20221109, end: 20221111
  2. ALBUTEROL [Concomitant]
     Active Substance: ALBUTEROL
  3. Women^s one a day silver [Concomitant]
  4. TYLENOL [Concomitant]
     Active Substance: ACETAMINOPHEN
  5. pepcid max strength [Concomitant]

REACTIONS (16)
  - Sinusitis [None]
  - Tooth disorder [None]
  - Eye disorder [None]
  - Gastric disorder [None]
  - Generalised oedema [None]
  - Anaphylactic shock [None]
  - Oropharyngeal pain [None]
  - Abdominal distension [None]
  - Abdominal rigidity [None]
  - Dyspnoea [None]
  - Eructation [None]
  - Diarrhoea [None]
  - Dizziness [None]
  - Vertigo [None]
  - Chromaturia [None]
  - Condition aggravated [None]

NARRATIVE: CASE EVENT DATE: 20221111
